FAERS Safety Report 25281383 (Version 1)
Quarter: 2025Q2

REPORT INFORMATION
  Report Type: Spontaneous
  Country: ES (occurrence: ES)
  Receive Date: 20250508
  Receipt Date: 20250508
  Transmission Date: 20250717
  Serious: Yes (Life-Threatening, Hospitalization)
  Sender: ACCORD
  Company Number: None

PATIENT
  Age: 63 Year
  Sex: Female

DRUGS (2)
  1. FLUOROURACIL [Interacting]
     Active Substance: FLUOROURACIL
     Indication: Anal cancer
     Dates: start: 20250210, end: 20250310
  2. MITOMYCIN [Interacting]
     Active Substance: MITOMYCIN
     Indication: Anal cancer
     Dates: start: 20250210, end: 20250310

REACTIONS (1)
  - Pancytopenia [Recovering/Resolving]

NARRATIVE: CASE EVENT DATE: 20250319
